FAERS Safety Report 21332236 (Version 1)
Quarter: 2022Q3

REPORT INFORMATION
  Report Type: Other
  Country: None (occurrence: IN)
  Receive Date: 20220914
  Receipt Date: 20220914
  Transmission Date: 20221027
  Serious: Yes (Hospitalization, Other)
  Sender: FDA-Public Use
  Company Number: IN-Appco Pharma LLC-2132840

PATIENT
  Age: 32 Year
  Sex: Female

DRUGS (3)
  1. LAMIVUDINE [Suspect]
     Active Substance: LAMIVUDINE
     Indication: HIV infection
     Route: 065
  2. TENOFOVIR DISOPROXIL FUMARATE [Suspect]
     Active Substance: TENOFOVIR DISOPROXIL FUMARATE
     Route: 065
  3. EFAVIRENZ [Suspect]
     Active Substance: EFAVIRENZ
     Route: 065

REACTIONS (1)
  - Evans syndrome [Recovering/Resolving]
